FAERS Safety Report 5167738-2 (Version None)
Quarter: 2006Q4

REPORT INFORMATION
  Report Type: 
  Country: None (occurrence: None)
  Receive Date: 20061204
  Receipt Date: 20061204
  Transmission Date: 20070319
  Serious: Yes (Hospitalization)
  Sender: FDA-Public Use
  Company Number: None

PATIENT
  Sex: Female

DRUGS (2)
  1. GLEEVEC [Suspect]
     Indication: GLIOBLASTOMA MULTIFORME
     Dosage: 400 MG QD
     Dates: start: 20050823, end: 20061130
  2. HYDROXYUREA [Suspect]
     Dosage: 500 MG BID
     Dates: start: 20050823, end: 20061130

REACTIONS (3)
  - ABDOMINAL PAIN UPPER [None]
  - FALL [None]
  - SPINAL FRACTURE [None]
